FAERS Safety Report 18859797 (Version 1)
Quarter: 2021Q1

REPORT INFORMATION
  Report Type: Spontaneous
  Country: US (occurrence: US)
  Receive Date: 20210208
  Receipt Date: 20210208
  Transmission Date: 20210420
  Serious: No
  Sender: FDA-Public Use
  Company Number: None

PATIENT
  Age: 39 Year
  Sex: Female

DRUGS (9)
  1. POTASSIUM CL 10MEQ [Concomitant]
     Dates: start: 20210119
  2. VITAMIN D 50,000 [Concomitant]
     Dates: start: 20210119
  3. CARVEDILOL 3.125 [Concomitant]
     Active Substance: CARVEDILOL
     Dates: start: 20210119
  4. NAMENDA 10MG [Concomitant]
     Dates: start: 20210119
  5. VIMPAT [Concomitant]
     Active Substance: LACOSAMIDE
     Dates: start: 20210119
  6. PANTOPRAZOLE 40MG [Concomitant]
     Active Substance: PANTOPRAZOLE SODIUM
     Dates: start: 20210119
  7. CAPECITABINE. [Suspect]
     Active Substance: CAPECITABINE
     Indication: BREAST CANCER
     Route: 048
     Dates: start: 20210119
  8. MAG OXIDE 400MG [Concomitant]
     Dates: start: 20210119
  9. DEXAMETHASONE 4MG [Concomitant]
     Active Substance: DEXAMETHASONE
     Dates: start: 20210119

REACTIONS (1)
  - Tachycardia [None]

NARRATIVE: CASE EVENT DATE: 20210208
